FAERS Safety Report 9613892 (Version 3)
Quarter: 2013Q4

REPORT INFORMATION
  Report Type: Report from Study
  Country: CA (occurrence: CA)
  Receive Date: 20131010
  Receipt Date: 20131025
  Transmission Date: 20140711
  Serious: Yes (Death)
  Sender: FDA-Public Use
  Company Number: CA-ROCHE-1231209

PATIENT
  Sex: Male
  Weight: 86 kg

DRUGS (9)
  1. AVASTIN [Suspect]
     Indication: GLIOBLASTOMA
     Route: 042
     Dates: start: 20130527, end: 20130708
  2. DEXAMETHASONE [Concomitant]
  3. RANITIDINE [Concomitant]
  4. PANTOLOC [Concomitant]
  5. LEVETIRACETAM [Concomitant]
  6. LACOSAMIDE [Concomitant]
  7. CIPRALEX [Concomitant]
  8. GRAVOL [Concomitant]
  9. DOCUSATE SODIUM [Concomitant]

REACTIONS (4)
  - Glioblastoma multiforme [Fatal]
  - Flushing [Unknown]
  - Fatigue [Unknown]
  - Somnolence [Unknown]
